FAERS Safety Report 6725790-4 (Version None)
Quarter: 2010Q2

REPORT INFORMATION
  Report Type: 
  Country: None (occurrence: None)
  Receive Date: 20100512
  Receipt Date: 20100428
  Transmission Date: 20101027
  Serious: Yes (Life-Threatening, Hospitalization, Other)
  Sender: FDA-Public Use
  Company Number: ESP10000055

PATIENT
  Age: 70 Year
  Sex: Male
  Weight: 72 kg

DRUGS (5)
  1. ACTONEL [Suspect]
     Indication: OSTEITIS DEFORMANS
     Dosage: 30 MG, 1/DAY , ORAL
     Route: 048
     Dates: start: 20030505, end: 20030701
  2. LESCOL /01224501/ (FLUVASTATIN) [Concomitant]
  3. SIMVASTATIN [Concomitant]
  4. DACORTIN (PREDNISONE) [Concomitant]
  5. ANTINIFLAMMATORY AGENTS, NON-STEROIDS [Concomitant]

REACTIONS (3)
  - DYSLIPIDAEMIA [None]
  - GASTRIC CANCER [None]
  - POLYMYALGIA RHEUMATICA [None]
